FAERS Safety Report 6059087-5 (Version None)
Quarter: 2009Q1

REPORT INFORMATION
  Report Type: 
  Country: None (occurrence: None)
  Receive Date: 20090130
  Receipt Date: 20090121
  Transmission Date: 20090719
  Serious: Yes (Death)
  Sender: FDA-Public Use
  Company Number: JAUSA10688

PATIENT
  Sex: Male
  Weight: 91.63 kg

DRUGS (7)
  1. DURAGESIC-100 [Suspect]
     Indication: PROCEDURAL PAIN
     Route: 062
  2. CODEINE [Suspect]
     Indication: DRUG USE FOR UNKNOWN INDICATION
  3. SUBLIMAZE [Suspect]
     Indication: ANAESTHESIA
     Route: 041
  4. MARCAINE [Concomitant]
     Route: 058
  5. TYLENOL W/ CODEINE NO. 3 [Concomitant]
     Route: 048
  6. SCOPOLAMINE [Concomitant]
     Route: 062
  7. EPINEPHRINE [Concomitant]

REACTIONS (2)
  - DRUG TOXICITY [None]
  - OFF LABEL USE [None]
